FAERS Safety Report 7692805-9 (Version None)
Quarter: 2011Q3

REPORT INFORMATION
  Report Type: 
  Country: None (occurrence: None)
  Receive Date: 20110819
  Receipt Date: 20110809
  Transmission Date: 20111222
  Serious: Yes (Hospitalization)
  Sender: FDA-Public Use
  Company Number: FR-JNJFOC-20110805416

PATIENT
  Sex: Female

DRUGS (7)
  1. TENORMIN [Concomitant]
     Indication: HYPERTENSION
     Route: 065
  2. EZETIMIBE [Concomitant]
     Indication: HYPER HDL CHOLESTEROLAEMIA
     Route: 065
  3. ANTI HYPERTENSIVES [Suspect]
     Indication: HYPERTENSION
     Route: 065
  4. ACUPAN [Concomitant]
     Indication: ARTHRALGIA
     Route: 065
  5. LERCANIDIPINE [Concomitant]
     Indication: HYPERTENSION
     Route: 065
  6. PREVISCAN (FLUINDIONE) [Concomitant]
     Indication: ARRHYTHMIA SUPRAVENTRICULAR
     Route: 065
  7. RISPERDAL [Suspect]
     Indication: PRODUCT USED FOR UNKNOWN INDICATION
     Route: 048
     Dates: end: 20101016

REACTIONS (3)
  - FRACTURE [None]
  - BALANCE DISORDER [None]
  - FALL [None]
